FAERS Safety Report 19401903 (Version 1)
Quarter: 2021Q2

REPORT INFORMATION
  Report Type: Spontaneous
  Country: US (occurrence: US)
  Receive Date: 20210611
  Receipt Date: 20210611
  Transmission Date: 20210717
  Serious: Yes (Hospitalization, Other)
  Sender: FDA-Public Use
  Company Number: US-CIPLA (EU) LIMITED-2021US04005

PATIENT

DRUGS (2)
  1. SALBUTAMOL [Suspect]
     Active Substance: ALBUTEROL
     Indication: ASTHMA
     Dosage: 1?2 PUFFS, BID
     Dates: start: 20210601, end: 202106
  2. ALLEGRA [Concomitant]
     Active Substance: FEXOFENADINE HYDROCHLORIDE
     Indication: MULTIPLE ALLERGIES
     Dosage: 180 MILLIGRAM, QD
     Route: 065

REACTIONS (11)
  - Dyspnoea [Recovering/Resolving]
  - Pneumonitis [Recovering/Resolving]
  - Drug ineffective [Unknown]
  - Chest discomfort [Recovering/Resolving]
  - Product container seal issue [Unknown]
  - Near death experience [Recovering/Resolving]
  - Asthma [Recovering/Resolving]
  - Product quality issue [Unknown]
  - Skin discolouration [Recovering/Resolving]
  - Device defective [Unknown]
  - Cold sweat [Recovering/Resolving]

NARRATIVE: CASE EVENT DATE: 20210601
